FAERS Safety Report 23905679 (Version 4)
Quarter: 2024Q3

REPORT INFORMATION
  Report Type: Spontaneous
  Country: JP (occurrence: JP)
  Receive Date: 20240527
  Receipt Date: 20240920
  Transmission Date: 20241016
  Serious: Yes (Hospitalization, Other)
  Sender: PFIZER
  Company Number: JP-PFIZER INC-PV202400068136

PATIENT
  Age: 77 Year
  Sex: Male
  Weight: 60 kg

DRUGS (15)
  1. TAFAMIDIS [Suspect]
     Active Substance: TAFAMIDIS
     Indication: Cardiac amyloidosis
     Dosage: AFTER BREAKFAST
     Route: 048
     Dates: start: 20240404, end: 20240423
  2. EDOXABAN TOSYLATE [Concomitant]
     Active Substance: EDOXABAN TOSYLATE
     Dosage: 60 MG
     Route: 048
     Dates: start: 20231222
  3. EDOXABAN TOSYLATE [Concomitant]
     Active Substance: EDOXABAN TOSYLATE
     Dosage: 60 MG, 1X/DAY
     Route: 048
     Dates: start: 20240403
  4. RABEPRAZOLE [Concomitant]
     Active Substance: RABEPRAZOLE
     Dosage: 15 MG
     Route: 048
     Dates: start: 20240228
  5. RABEPRAZOLE [Concomitant]
     Active Substance: RABEPRAZOLE
     Dosage: 15 MG, 1X/DAY
     Route: 048
     Dates: start: 20240403
  6. SPIRONOLACTONE [Concomitant]
     Active Substance: SPIRONOLACTONE
     Dosage: 25 MG, 1X/DAY
     Route: 048
     Dates: start: 20240403
  7. AMBROXOL HYDROCHLORIDE [Concomitant]
     Active Substance: AMBROXOL HYDROCHLORIDE
     Dosage: 45 MG, 1X/DAY
     Dates: start: 20240403
  8. BEVESPI AEROSPHERE [Concomitant]
     Active Substance: FORMOTEROL FUMARATE\GLYCOPYRROLATE
     Dosage: 1 DF, 2X/DAY
     Dates: start: 20240124
  9. BEVESPI AEROSPHERE [Concomitant]
     Active Substance: FORMOTEROL FUMARATE\GLYCOPYRROLATE
     Dosage: 1 DF, 2X/DAY
     Dates: start: 20240403
  10. ACETAMINOPHEN [Concomitant]
     Active Substance: ACETAMINOPHEN
     Dosage: 300 MG, AS NEEDED
     Dates: start: 20240131
  11. KETOPROFEN TEIKOKU [Concomitant]
     Dosage: UNK, 1X/DAY
     Route: 062
     Dates: start: 20240131
  12. EPERISONE HYDROCHLORIDE [Concomitant]
     Active Substance: EPERISONE HYDROCHLORIDE
     Dosage: 50 MG, 3X/DAY
     Dates: start: 20240131
  13. REBAMIPIDE [Concomitant]
     Active Substance: REBAMIPIDE
     Dosage: 100 MG, 2X/DAY
     Dates: start: 20240131
  14. MIROGABALIN BESYLATE [Concomitant]
     Active Substance: MIROGABALIN BESYLATE
     Dosage: 5 MG, 2X/DAY
     Dates: start: 20240131
  15. HERBAL NOS [Concomitant]
     Active Substance: HERBALS
     Dosage: 1 DF, 1X/DAY
     Dates: start: 20240131

REACTIONS (2)
  - Drug-induced liver injury [Recovered/Resolved]
  - Vasculitis [Recovered/Resolved]

NARRATIVE: CASE EVENT DATE: 20240401
